FAERS Safety Report 14856810 (Version 1)
Quarter: 2018Q2

REPORT INFORMATION
  Report Type: Spontaneous
  Country: US (occurrence: US)
  Receive Date: 20180507
  Receipt Date: 20180507
  Transmission Date: 20180711
  Serious: No
  Sender: FDA-Public Use
  Company Number: US-ROCHE-2073895

PATIENT
  Sex: Male

DRUGS (15)
  1. CARISOPRODOL. [Concomitant]
     Active Substance: CARISOPRODOL
     Route: 065
  2. OMEPRAZOLE. [Concomitant]
     Active Substance: OMEPRAZOLE
     Route: 065
  3. ONDANSETRON [Concomitant]
     Active Substance: ONDANSETRON
     Route: 065
  4. ESBRIET [Suspect]
     Active Substance: PIRFENIDONE
     Indication: IDIOPATHIC PULMONARY FIBROSIS
     Dosage: TAKE 1 TAB BY MOUTH 3X DAILY FOR 1 WEEK
     Route: 048
     Dates: start: 20180104
  5. ESBRIET [Suspect]
     Active Substance: PIRFENIDONE
     Dosage: TAKE 3TABS 3TIMES DAILY
     Route: 048
  6. METAXALONE. [Concomitant]
     Active Substance: METAXALONE
     Route: 065
  7. OXYCODONE HYDROCHLORIDE. [Concomitant]
     Active Substance: OXYCODONE HYDROCHLORIDE
     Route: 065
  8. ESBRIET [Suspect]
     Active Substance: PIRFENIDONE
     Dosage: TAKE 2 TABS 3 TIMES DAILY FOR 1 WEEK
     Route: 048
  9. GLIPIZIDE. [Concomitant]
     Active Substance: GLIPIZIDE
     Route: 065
  10. IBUPROFEN. [Concomitant]
     Active Substance: IBUPROFEN
     Route: 065
  11. MORPHINE SULPHATE [Concomitant]
     Active Substance: MORPHINE SULFATE
     Route: 065
  12. TIZANIDINE. [Concomitant]
     Active Substance: TIZANIDINE
     Route: 065
  13. LORATADINE. [Concomitant]
     Active Substance: LORATADINE
     Route: 065
  14. MELOXICAM. [Concomitant]
     Active Substance: MELOXICAM
     Route: 065
  15. AMLODIPINE BESILATE [Concomitant]
     Active Substance: AMLODIPINE BESYLATE
     Route: 065

REACTIONS (6)
  - Arthralgia [Unknown]
  - Hot flush [Unknown]
  - Back pain [Unknown]
  - Vomiting [Unknown]
  - Neck pain [Unknown]
  - Ocular discomfort [Unknown]
